FAERS Safety Report 7092969-4 (Version None)
Quarter: 2010Q4

REPORT INFORMATION
  Report Type: 
  Country: None (occurrence: None)
  Receive Date: 20101110
  Receipt Date: 20090429
  Transmission Date: 20110411
  Serious: No
  Sender: FDA-Public Use
  Company Number: US-KINGPHARMUSA00001-K200900508

PATIENT
  Age: 29 Year
  Sex: Female

DRUGS (1)
  1. BICILLIN C-R 900/300 [Suspect]
     Indication: STREPTOCOCCAL INFECTION
     Dosage: 1200000 U, SINGLE
     Route: 030
     Dates: start: 20090429, end: 20090429

REACTIONS (2)
  - CHEST DISCOMFORT [None]
  - THROAT TIGHTNESS [None]
